FAERS Safety Report 6158973-5 (Version None)
Quarter: 2009Q2

REPORT INFORMATION
  Report Type: 
  Country: None (occurrence: None)
  Receive Date: 20090417
  Receipt Date: 20090406
  Transmission Date: 20091009
  Serious: Yes (Hospitalization)
  Sender: FDA-Public Use
  Company Number: US-PFIZER INC-2009198370

PATIENT
  Sex: Female
  Weight: 40.816 kg

DRUGS (3)
  1. CHANTIX [Suspect]
     Indication: SMOKING CESSATION THERAPY
     Dosage: 1 MG, 2X/DAY
     Route: 048
     Dates: start: 20090301
  2. LIPITOR [Concomitant]
  3. MECLIZINE [Concomitant]

REACTIONS (4)
  - ANOREXIA [None]
  - EAR PAIN [None]
  - HEADACHE [None]
  - NECK PAIN [None]
